FAERS Safety Report 5144439-8 (Version None)
Quarter: 2006Q4

REPORT INFORMATION
  Report Type: 
  Country: None (occurrence: None)
  Receive Date: 20061031
  Receipt Date: 20061016
  Transmission Date: 20070319
  Serious: Yes (Other)
  Sender: FDA-Public Use
  Company Number: 2006BL006086

PATIENT
  Age: 45 Year
  Sex: Female

DRUGS (5)
  1. FLOXAL AUGENTROPFEN (OFLOXACIN) [Suspect]
     Indication: CONJUNCTIVITIS
     Dosage: 3 TIMES A DAY; LEFT EYE
  2. DEXA-SINE (DEXAMETHASONE) [Suspect]
     Indication: CONJUNCTIVITIS
     Dosage: 3 TIMES A DAY; LEFT EYE
  3. HYLO-COMOD [Suspect]
     Dosage: 100X; OPHTHALMIC
     Route: 047
  4. MAXIDEX [Suspect]
     Dosage: 3 TIMES A DAY; RIGHT EYE
  5. PRED FORTE [Suspect]
     Dosage: TOPICAL
     Route: 061

REACTIONS (3)
  - CONDUCTIVE KERATOPLASTY [None]
  - CORNEAL DEPOSITS [None]
  - CORNEAL THINNING [None]
